FAERS Safety Report 13838133 (Version 2)
Quarter: 2022Q1

REPORT INFORMATION
  Report Type: Spontaneous
  Country: IT (occurrence: IT)
  Receive Date: 20170807
  Receipt Date: 20220130
  Transmission Date: 20220423
  Serious: Yes (Death, Other)
  Sender: FDA-Public Use
  Company Number: IT-JAZZ-2017-IT-009746

PATIENT
  Age: 4 Year
  Sex: Female

DRUGS (5)
  1. DEFITELIO [Suspect]
     Active Substance: DEFIBROTIDE SODIUM
     Indication: Microangiopathy
     Route: 042
  2. CIPROFLOXACIN [Concomitant]
     Active Substance: CIPROFLOXACIN
     Indication: Sepsis
     Route: 065
  3. VORICONAZOLE [Concomitant]
     Active Substance: VORICONAZOLE
     Indication: Aspergillus infection
     Dosage: 18MG/KG, QD, FIRST DAYS
     Route: 065
  4. VORICONAZOLE [Concomitant]
     Active Substance: VORICONAZOLE
     Dosage: 16 MG/KG, QD
  5. CIDOFOVIR [Concomitant]
     Active Substance: CIDOFOVIR
     Indication: Cystitis haemorrhagic
     Route: 065

REACTIONS (3)
  - Adenovirus infection [Fatal]
  - Toxic epidermal necrolysis [Unknown]
  - Off label use [Unknown]
